FAERS Safety Report 6922547-6 (Version None)
Quarter: 2010Q3

REPORT INFORMATION
  Report Type: 
  Country: None (occurrence: None)
  Receive Date: 20100813
  Receipt Date: 20100811
  Transmission Date: 20110219
  Serious: Yes (Hospitalization, Disabling, Other)
  Sender: FDA-Public Use
  Company Number: US-ROXANE LABORATORIES, INC.-2010-RO-01031RO

PATIENT
  Age: 33 Year
  Sex: Female

DRUGS (15)
  1. NAPROXEN [Suspect]
     Indication: PAIN IN EXTREMITY
  2. PROPOXYPHENE AND ACETAMINOPHEN [Suspect]
     Indication: PAIN IN EXTREMITY
  3. NITROGLYCERIN [Suspect]
     Indication: CHEST PAIN
     Route: 060
  4. HEPARIN [Suspect]
     Indication: THROMBOSIS PROPHYLAXIS
  5. SOLU-MEDROL [Suspect]
     Indication: ANGIOPATHY
     Route: 042
  6. SOLU-MEDROL [Suspect]
     Route: 042
  7. SOLU-MEDROL [Suspect]
     Dosage: 120 MG
     Route: 042
  8. ROCEPHIN [Suspect]
     Indication: ESCHERICHIA BACTERAEMIA
     Dosage: 1 G
     Route: 042
  9. CIPROFLOXACIN [Suspect]
     Indication: ESCHERICHIA BACTERAEMIA
     Dosage: 1500 MG
     Route: 042
  10. COLCHICINE [Suspect]
     Indication: LEUKOCYTOCLASTIC VASCULITIS
     Dosage: 1.2 MG
     Route: 048
  11. DAPSONE [Suspect]
     Indication: LEUKOCYTOCLASTIC VASCULITIS
     Dosage: 50 MG
     Route: 048
  12. DAPSONE [Suspect]
     Dosage: 200 MG
     Route: 048
  13. CYTOXAN [Suspect]
     Indication: LEUKOCYTOCLASTIC VASCULITIS
  14. BACTRIM [Suspect]
     Indication: ANTIFUNGAL PROPHYLAXIS
  15. REVATIO [Suspect]
     Dosage: 60 MG
     Route: 048

REACTIONS (12)
  - ARTERIAL OCCLUSIVE DISEASE [None]
  - CHEST PAIN [None]
  - DRUG INEFFECTIVE [None]
  - ESCHERICHIA BACTERAEMIA [None]
  - FINGER AMPUTATION [None]
  - GANGRENE [None]
  - HAEMOGLOBIN DECREASED [None]
  - LEG AMPUTATION [None]
  - LEUKOCYTOCLASTIC VASCULITIS [None]
  - PAIN [None]
  - PAIN IN EXTREMITY [None]
  - PULSE ABSENT [None]
